FAERS Safety Report 20490349 (Version 1)
Quarter: 2022Q1

REPORT INFORMATION
  Report Type: Spontaneous
  Country: US (occurrence: US)
  Receive Date: 20220218
  Receipt Date: 20220218
  Transmission Date: 20220423
  Serious: Yes (Death, Hospitalization)
  Sender: FDA-Public Use
  Company Number: US-MYLANLABS-2022M1013546

PATIENT
  Age: 66 Year
  Sex: Female

DRUGS (6)
  1. PREDNISONE [Suspect]
     Active Substance: PREDNISONE
     Indication: Immunosuppressant drug therapy
     Dosage: UNK
     Route: 065
  2. PREDNISONE [Suspect]
     Active Substance: PREDNISONE
     Indication: Crohn^s disease
  3. INFLIXIMAB [Suspect]
     Active Substance: INFLIXIMAB
     Indication: Immunosuppressant drug therapy
     Dosage: UNK
     Route: 065
  4. INFLIXIMAB [Suspect]
     Active Substance: INFLIXIMAB
     Indication: Crohn^s disease
  5. MESALAMINE [Concomitant]
     Active Substance: MESALAMINE
     Indication: Immunosuppressant drug therapy
     Dosage: UNK
     Route: 065
  6. MESALAMINE [Concomitant]
     Active Substance: MESALAMINE
     Indication: Crohn^s disease

REACTIONS (8)
  - Disseminated cytomegaloviral infection [Fatal]
  - Cytomegalovirus mucocutaneous ulcer [Fatal]
  - Cytomegalovirus gastrointestinal infection [Fatal]
  - Respiratory failure [Fatal]
  - Shock [Fatal]
  - Acute kidney injury [Unknown]
  - Hypotension [Unknown]
  - Mental status changes [Unknown]
